FAERS Safety Report 25889179 (Version 1)
Quarter: 2025Q4

REPORT INFORMATION
  Report Type: Spontaneous
  Country: EU (occurrence: EU)
  Receive Date: 20251007
  Receipt Date: 20251007
  Transmission Date: 20260118
  Serious: Yes (Hospitalization)
  Sender: ROCHE
  Company Number: None

PATIENT
  Age: 51 Year
  Sex: Male

DRUGS (11)
  1. ATEZOLIZUMAB [Suspect]
     Active Substance: ATEZOLIZUMAB
     Indication: Hepatic cancer
     Dosage: 1200.0 MG C/21 DIAS
     Route: 042
     Dates: start: 20250613
  2. LEVOCETIRIZINE [Concomitant]
     Active Substance: LEVOCETIRIZINE
     Dosage: 5.0 MG DECE
     Route: 048
     Dates: start: 20250402
  3. JARDIANCE [Concomitant]
     Active Substance: EMPAGLIFLOZIN
     Dosage: 25.0 MG C/24 H
     Route: 048
     Dates: start: 20240828
  4. SIMVASTATINA TEVA [Concomitant]
     Dosage: 20.0 MG CE
     Route: 048
     Dates: start: 20240710
  5. OMEPRAZOLE [Concomitant]
     Active Substance: OMEPRAZOLE
     Dosage: 20.0 MG A-DE
     Route: 048
     Dates: start: 20250606
  6. PREDNICARBATE [Concomitant]
     Active Substance: PREDNICARBATE
     Dosage: 1.0 APLIC C/24 H
     Route: 061
     Dates: start: 20250607, end: 20250914
  7. POLARAMINE [Concomitant]
     Active Substance: DEXCHLORPHENIRAMINE MALEATE
     Dosage: 2.0 MG DECOCE
     Route: 048
     Dates: start: 20250606
  8. TRAMADOL [Concomitant]
     Active Substance: TRAMADOL
     Dosage: 1.0 COMP DECE
     Route: 048
     Dates: start: 20250625
  9. SITAGLIPTIN [Concomitant]
     Active Substance: SITAGLIPTIN
     Indication: Type 2 diabetes mellitus
     Dosage: 1.0 COMP DECE
     Route: 048
     Dates: start: 20250625
  10. ACETAMINOPHEN [Concomitant]
     Active Substance: ACETAMINOPHEN
     Dosage: 650.0 MG DECOCE
     Route: 048
     Dates: start: 20250509
  11. CARVEDILOL CINFA [Concomitant]
     Dosage: 9.375 MG DECE
     Route: 048
     Dates: start: 20250605

REACTIONS (1)
  - Eosinophilia [Recovered/Resolved]

NARRATIVE: CASE EVENT DATE: 20250629
